FAERS Safety Report 7772910 (Version 3)
Quarter: 2016Q3

REPORT INFORMATION
  Report Type: Report from Study
  Country: US (occurrence: US)
  Receive Date: 20110125
  Receipt Date: 20160914
  Transmission Date: 20161109
  Serious: Yes (Death, Hospitalization, Other)
  Sender: FDA-Public Use
  Company Number: US-ROCHE-754175

PATIENT
  Age: 59 Year
  Sex: Female
  Weight: 66 kg

DRUGS (8)
  1. TEMSIROLIMUS [Suspect]
     Active Substance: TEMSIROLIMUS
     Indication: ENDOMETRIAL CANCER
     Dosage: ON DAYS 1, 8, 15 AND 22, COURSE 1
     Route: 042
  2. MIRALAX [Concomitant]
     Active Substance: POLYETHYLENE GLYCOL 3350
  3. BEVACIZUMAB [Suspect]
     Active Substance: BEVACIZUMAB
     Indication: ENDOMETRIAL CANCER
     Dosage: OVER 30-90 MINUTES ON DAYS 01 AND 15, DOSE: 1446 MG, COURSE 1
     Route: 042
  4. BEVACIZUMAB [Suspect]
     Active Substance: BEVACIZUMAB
     Dosage: OVER 30-90 MINUTES ON DAYS 01 AND 15, DOSE: 666 MG, COURSE 2
     Route: 042
  5. FLEXERIL [Concomitant]
     Active Substance: CYCLOBENZAPRINE HYDROCHLORIDE
  6. TEMSIROLIMUS [Suspect]
     Active Substance: TEMSIROLIMUS
     Dosage: ON DAYS 1, 8, 15 AND 22, COURSE 2
     Route: 042
  7. COUMADIN [Suspect]
     Active Substance: WARFARIN SODIUM
     Indication: VENA CAVA THROMBOSIS
     Route: 065
  8. VICODIN [Concomitant]
     Active Substance: ACETAMINOPHEN\HYDROCODONE BITARTRATE

REACTIONS (6)
  - Lower gastrointestinal haemorrhage [Unknown]
  - Embolism [Unknown]
  - Aorto-duodenal fistula [Unknown]
  - Duodenal perforation [Recovered/Resolved]
  - Gastric haemorrhage [Recovered/Resolved]
  - Death [Fatal]

NARRATIVE: CASE EVENT DATE: 20101101
